FAERS Safety Report 7626337-0 (Version None)
Quarter: 2011Q3

REPORT INFORMATION
  Report Type: 
  Country: None (occurrence: None)
  Receive Date: 20110721
  Receipt Date: 20110708
  Transmission Date: 20111222
  Serious: Yes (Hospitalization)
  Sender: FDA-Public Use
  Company Number: KR-AMGEN-KORSP2011035737

PATIENT
  Age: 30 Year
  Sex: Female

DRUGS (3)
  1. ZITHROMAX [Concomitant]
  2. CINACALCET HYDROCHLORIDE [Suspect]
     Indication: HYPERPARATHYROIDISM
     Dosage: UNCERTAINTY
     Route: 048
  3. CODEINE SUL TAB [Concomitant]

REACTIONS (1)
  - PLEURAL EFFUSION [None]
